FAERS Safety Report 13876430 (Version 1)
Quarter: 2017Q3

REPORT INFORMATION
  Report Type: Report from Study
  Country: JP (occurrence: JP)
  Receive Date: 20170817
  Receipt Date: 20170817
  Transmission Date: 20171127
  Serious: Yes (Other)
  Sender: FDA-Public Use
  Company Number: JP-AMGEN-JPNCT2017124475

PATIENT
  Sex: Male

DRUGS (9)
  1. DARBEPOETIN ALFA [Suspect]
     Active Substance: DARBEPOETIN ALFA
     Dosage: 30 MUG, QD
     Route: 042
     Dates: start: 20160923, end: 20160923
  2. DARBEPOETIN ALFA [Suspect]
     Active Substance: DARBEPOETIN ALFA
     Dosage: 100 MUG, QD
     Route: 042
     Dates: start: 20161221, end: 20161221
  3. DARBEPOETIN ALFA [Suspect]
     Active Substance: DARBEPOETIN ALFA
     Indication: CHRONIC KIDNEY DISEASE
     Dosage: 30 MUG, QD
     Route: 042
     Dates: start: 20160909, end: 20160909
  4. DARBEPOETIN ALFA [Suspect]
     Active Substance: DARBEPOETIN ALFA
     Dosage: 40 MUG, QD
     Route: 042
     Dates: start: 20161028, end: 20161028
  5. DARBEPOETIN ALFA [Suspect]
     Active Substance: DARBEPOETIN ALFA
     Dosage: 50 MUG, QD
     Route: 042
     Dates: start: 20161111, end: 20161111
  6. DARBEPOETIN ALFA [Suspect]
     Active Substance: DARBEPOETIN ALFA
     Dosage: 60 MUG, QD
     Route: 042
     Dates: start: 20170510, end: 20170510
  7. DARBEPOETIN ALFA [Suspect]
     Active Substance: DARBEPOETIN ALFA
     Dosage: 50 MUG, QD
     Route: 042
     Dates: start: 20161125, end: 20161125
  8. DARBEPOETIN ALFA [Suspect]
     Active Substance: DARBEPOETIN ALFA
     Dosage: 100 MUG, QD
     Route: 042
     Dates: start: 20170215, end: 20170215
  9. DARBEPOETIN ALFA [Suspect]
     Active Substance: DARBEPOETIN ALFA
     Dosage: 40 MUG, QD
     Route: 042
     Dates: start: 20161007, end: 20161007

REACTIONS (1)
  - Spinal compression fracture [Unknown]

NARRATIVE: CASE EVENT DATE: 20170315
